FAERS Safety Report 22343395 (Version 1)
Quarter: 2023Q2

REPORT INFORMATION
  Report Type: Spontaneous
  Country: IN (occurrence: IN)
  Receive Date: 20230519
  Receipt Date: 20230519
  Transmission Date: 20230721
  Serious: Yes (Other)
  Sender: FDA-Public Use
  Company Number: IN-drreddys-LIT/IND/23/0165205

PATIENT
  Age: 45 Year
  Sex: Male

DRUGS (4)
  1. MONTELUKAST [Suspect]
     Active Substance: MONTELUKAST SODIUM
     Indication: COVID-19
  2. LINEZOLID [Suspect]
     Active Substance: LINEZOLID
     Indication: COVID-19
  3. ZINC [Suspect]
     Active Substance: ZINC
     Indication: COVID-19
  4. AMOXICILLIN\CLAVULANIC ACID [Suspect]
     Active Substance: AMOXICILLIN\CLAVULANIC ACID
     Indication: COVID-19

REACTIONS (2)
  - Mucormycosis [Recovered/Resolved]
  - Product use in unapproved indication [Unknown]
